FAERS Safety Report 4764933-9 (Version None)
Quarter: 2005Q3

REPORT INFORMATION
  Report Type: 
  Country: None (occurrence: None)
  Receive Date: 20050909
  Receipt Date: 20050121
  Transmission Date: 20060218
  Serious: Yes (Hospitalization, Disabling)
  Sender: FDA-Public Use
  Company Number: US-ROCHE-393380

PATIENT
  Age: 14 Year
  Sex: Female
  Weight: 54.4 kg

DRUGS (1)
  1. ACCUTANE [Suspect]
     Indication: ACNE
     Route: 048
     Dates: start: 19970110, end: 19970615

REACTIONS (14)
  - ANAEMIA [None]
  - ASCITES [None]
  - ASPARTATE AMINOTRANSFERASE INCREASED [None]
  - BACTERIA URINE [None]
  - CREATININE URINE INCREASED [None]
  - DEHYDRATION [None]
  - GLOMERULOSCLEROSIS [None]
  - HEPATOMEGALY [None]
  - HYPOCALCAEMIA [None]
  - HYPOTENSION [None]
  - INTERNAL INJURY [None]
  - PROTEINURIA [None]
  - RENAL DISORDER [None]
  - URINARY TRACT INFECTION [None]
